FAERS Safety Report 23824809 (Version 1)
Quarter: 2024Q2

REPORT INFORMATION
  Report Type: Report from Study
  Country: US (occurrence: US)
  Receive Date: 20240507
  Receipt Date: 20240507
  Transmission Date: 20240716
  Serious: Yes (Death, Hospitalization, Other)
  Sender: FDA-Public Use
  Company Number: US-ASTELLAS-2024EU003614

PATIENT
  Age: 93 Year
  Sex: Male
  Weight: 100 kg

DRUGS (7)
  1. ENZALUTAMIDE [Suspect]
     Active Substance: ENZALUTAMIDE
     Indication: Prostate cancer
     Dosage: 160 MG, ONCE DAILY (AT BEDTIME)
     Route: 048
     Dates: start: 2021, end: 20240410
  2. FINASTERIDE [Concomitant]
     Active Substance: FINASTERIDE
     Indication: Product used for unknown indication
     Dosage: 5 MG, ONCE DAILY (START DATE: A LONG TIME AGO, YEARS AGO)
     Route: 048
     Dates: end: 20240410
  3. SUCRALFATE [Concomitant]
     Active Substance: SUCRALFATE
     Indication: Product used for unknown indication
     Route: 048
     Dates: end: 20240410
  4. ATORVASTATIN [Concomitant]
     Active Substance: ATORVASTATIN
     Indication: Blood cholesterol increased
     Dosage: 20 MG, ONCE DAILY (START DATE: A LONG TIME AGO)
     Route: 048
     Dates: end: 20240410
  5. LEVOTHYROXINE [Concomitant]
     Active Substance: LEVOTHYROXINE\LEVOTHYROXINE SODIUM
     Indication: Hypothyroidism
     Dosage: 125 ?G, ONCE DAILY (START DATE: A LONG TIME AGO) EVERY MORNING
     Route: 048
     Dates: end: 20240410
  6. FENOFIBRATE [Concomitant]
     Active Substance: FENOFIBRATE
     Indication: Product used for unknown indication
     Dosage: 160 MG, ONCE DAILY (START DATE: A LONG TIME AGO)
     Route: 048
     Dates: end: 20240410
  7. FLUTICASONE PROPIONATE [Concomitant]
     Active Substance: FLUTICASONE PROPIONATE
     Indication: Allergic sinusitis
     Dosage: 50 ?G, AS NEEDED START DATE: A LONG TIME AGO
     Route: 045
     Dates: end: 20240410

REACTIONS (8)
  - Clostridium difficile infection [Fatal]
  - Anaemia [Not Recovered/Not Resolved]
  - Asthenia [Not Recovered/Not Resolved]
  - Disorientation [Not Recovered/Not Resolved]
  - Condition aggravated [Not Recovered/Not Resolved]
  - Age-related macular degeneration [Not Recovered/Not Resolved]
  - Deep vein thrombosis [Unknown]
  - Hypophagia [Not Recovered/Not Resolved]

NARRATIVE: CASE EVENT DATE: 20231001
